FAERS Safety Report 4923891-4 (Version None)
Quarter: 2006Q1

REPORT INFORMATION
  Report Type: 
  Country: None (occurrence: None)
  Receive Date: 20060227
  Receipt Date: 20051221
  Transmission Date: 20060701
  Serious: Yes (Hospitalization)
  Sender: FDA-Public Use
  Company Number: US-MERCK-0512USA03434

PATIENT
  Age: 50 Year
  Sex: Female
  Weight: 152 kg

DRUGS (1)
  1. VIOXX [Suspect]
     Indication: OSTEOARTHRITIS
     Route: 048
     Dates: start: 19990623, end: 20040601

REACTIONS (15)
  - ADRENAL INSUFFICIENCY [None]
  - ASTHENIA [None]
  - CEREBRAL INFARCTION [None]
  - COUGH [None]
  - DEPRESSION [None]
  - DIABETES MELLITUS [None]
  - DRUG ABUSER [None]
  - DYSPNOEA [None]
  - GLYCOSYLATED HAEMOGLOBIN INCREASED [None]
  - HYPERTENSION [None]
  - NEUROPATHY PERIPHERAL [None]
  - OEDEMA PERIPHERAL [None]
  - PERIPHERAL VASCULAR DISORDER [None]
  - SINUSITIS [None]
  - VIRAL PHARYNGITIS [None]
